FAERS Safety Report 4484254-1 (Version None)
Quarter: 2004Q4

REPORT INFORMATION
  Report Type: 
  Country: None (occurrence: None)
  Receive Date: 20041025
  Receipt Date: 20041014
  Transmission Date: 20050328
  Serious: Yes (Hospitalization)
  Sender: FDA-Public Use
  Company Number: FR-GLAXOSMITHKLINE-B0348545A

PATIENT
  Age: 74 Year
  Sex: Male
  Weight: 84 kg

DRUGS (6)
  1. ALKERAN [Suspect]
     Dosage: 1UNIT SEE DOSAGE TEXT
     Route: 048
     Dates: start: 20040105
  2. CORTANCYL [Suspect]
     Dosage: 115MG SEE DOSAGE TEXT
     Route: 048
     Dates: start: 20040105
  3. KALEORID [Suspect]
     Dosage: 1UNIT PER DAY
     Route: 048
  4. LASILIX [Suspect]
     Dosage: 60MG PER DAY
     Route: 048
  5. PREVISCAN [Suspect]
     Dosage: 15MG PER DAY
     Route: 048
  6. COVERSYL [Suspect]
     Dosage: 4MG PER DAY
     Route: 048
     Dates: start: 20040510

REACTIONS (7)
  - ASCITES [None]
  - CARDIAC FAILURE [None]
  - CARDIOVASCULAR DISORDER [None]
  - DYSPNOEA EXERTIONAL [None]
  - OEDEMA PERIPHERAL [None]
  - RIGHT VENTRICULAR FAILURE [None]
  - WEIGHT INCREASED [None]
